FAERS Safety Report 10234302 (Version 1)
Quarter: 2014Q2

REPORT INFORMATION
  Report Type: Report from Study
  Country: FR (occurrence: FR)
  Receive Date: 20140612
  Receipt Date: 20140612
  Transmission Date: 20141212
  Serious: Yes (Hospitalization)
  Sender: FDA-Public Use
  Company Number: FR-BIOMARINAP-FR-2014-103420

PATIENT
  Age: 1 Year
  Sex: Female
  Weight: 16 kg

DRUGS (1)
  1. BMN 110 [Suspect]
     Indication: MUCOPOLYSACCHARIDOSIS IV
     Dosage: 20 MG, UNK
     Route: 041
     Dates: start: 20140605

REACTIONS (2)
  - Hyperthermia [Recovered/Resolved]
  - Tachycardia [Recovered/Resolved]
